FAERS Safety Report 7793124-2 (Version None)
Quarter: 2011Q4

REPORT INFORMATION
  Report Type: 
  Country: None (occurrence: None)
  Receive Date: 20111003
  Receipt Date: 20110923
  Transmission Date: 20120403
  Serious: Yes (Other)
  Sender: FDA-Public Use
  Company Number: ES-JNJFOC-20110910382

PATIENT
  Age: 13 Year
  Sex: Female
  Weight: 50 kg

DRUGS (2)
  1. CONCERTA [Suspect]
     Route: 065
     Dates: start: 20091201, end: 20110101
  2. CONCERTA [Suspect]
     Indication: ATTENTION DEFICIT/HYPERACTIVITY DISORDER
     Route: 065
     Dates: start: 20110101, end: 20110101

REACTIONS (1)
  - NEPHROTIC SYNDROME [None]
